FAERS Safety Report 6239495-X (Version None)
Quarter: 2009Q2

REPORT INFORMATION
  Report Type: 
  Country: None (occurrence: None)
  Receive Date: 20090622
  Receipt Date: 20090610
  Transmission Date: 20091009
  Serious: Yes (Hospitalization, Other)
  Sender: FDA-Public Use
  Company Number: BE-AVENTIS-200819327GDDC

PATIENT
  Age: 37 Year
  Sex: Female

DRUGS (3)
  1. ARAVA [Suspect]
     Indication: RHEUMATOID ARTHRITIS
     Route: 048
  2. MOBIC [Suspect]
     Dosage: DOSE: UNK
  3. LEDERTREXATE                       /00113801/ [Concomitant]
     Route: 048

REACTIONS (5)
  - CARDIAC FAILURE [None]
  - FATIGUE [None]
  - PALPITATIONS [None]
  - PULMONARY HYPERTENSION [None]
  - RESTRICTIVE CARDIOMYOPATHY [None]
